FAERS Safety Report 6070435-2 (Version None)
Quarter: 2009Q1

REPORT INFORMATION
  Report Type: 
  Country: None (occurrence: None)
  Receive Date: 20090209
  Receipt Date: 20090127
  Transmission Date: 20090719
  Serious: Yes (Other)
  Sender: FDA-Public Use
  Company Number: BE-AMGEN-UK330405

PATIENT
  Sex: Female

DRUGS (3)
  1. VECTIBIX [Suspect]
     Indication: COLORECTAL CANCER
     Route: 042
     Dates: start: 20081203
  2. MAGNESIUM SULFATE [Concomitant]
     Route: 048
     Dates: start: 20081217
  3. IMODIUM [Concomitant]
     Route: 048
     Dates: start: 20080103

REACTIONS (4)
  - BLOOD CALCIUM DECREASED [None]
  - BLOOD MAGNESIUM DECREASED [None]
  - EPILEPSY [None]
  - NERVOUS SYSTEM DISORDER [None]
